FAERS Safety Report 6626284-7 (Version None)
Quarter: 2010Q1

REPORT INFORMATION
  Report Type: 
  Country: None (occurrence: None)
  Receive Date: 20100310
  Receipt Date: 20090615
  Transmission Date: 20100710
  Serious: No
  Sender: FDA-Public Use
  Company Number: US-ABBOTT-09P-163-0498908-00

PATIENT
  Sex: Female
  Weight: 95.34 kg

DRUGS (3)
  1. LUPRON DEPOT [Suspect]
     Indication: GENITAL CYST
     Route: 030
     Dates: start: 20090106
  2. LUPRON DEPOT [Suspect]
     Indication: ENDOMETRIOSIS
  3. NORETHINDRONE [Concomitant]
     Indication: DRUG USE FOR UNKNOWN INDICATION

REACTIONS (6)
  - ABDOMINAL PAIN [None]
  - FEELING ABNORMAL [None]
  - HEADACHE [None]
  - HOT FLUSH [None]
  - NASOPHARYNGITIS [None]
  - PYREXIA [None]
